FAERS Safety Report 5135779-7 (Version None)
Quarter: 2006Q4

REPORT INFORMATION
  Report Type: 
  Country: None (occurrence: None)
  Receive Date: 20061024
  Receipt Date: 20061024
  Transmission Date: 20070319
  Serious: Yes (Hospitalization)
  Sender: FDA-Public Use
  Company Number: None

PATIENT
  Age: 68 Year
  Sex: Female
  Weight: 65 kg

DRUGS (2)
  1. AMICAR [Suspect]
     Dosage: 1 GRAM DOSE -TWO 500MG TABS-   TID   PO
     Route: 048
     Dates: start: 20061012, end: 20061013
  2. OMEGA-3-ACID ETHYL ESTER    1 GRAM CAPSULE    RELIANT PHARMACEUTICALS [Suspect]
     Indication: HYPERTRIGLYCERIDAEMIA
     Dosage: 1 GRAM DOSE   TID   PO
     Route: 048

REACTIONS (10)
  - ANGINA UNSTABLE [None]
  - CARDIOVASCULAR DISORDER [None]
  - DRUG DISPENSING ERROR [None]
  - ELECTROCARDIOGRAM ST SEGMENT ELEVATION [None]
  - ELECTROCARDIOGRAM T WAVE INVERSION [None]
  - MEDICATION ERROR [None]
  - NAUSEA [None]
  - POST PROCEDURAL COMPLICATION [None]
  - TROPONIN INCREASED [None]
  - WRONG DRUG ADMINISTERED [None]
